FAERS Safety Report 5263414-6 (Version None)
Quarter: 2007Q1

REPORT INFORMATION
  Report Type: 
  Country: None (occurrence: None)
  Receive Date: 20070313
  Receipt Date: 20070305
  Transmission Date: 20070707
  Serious: Yes (Hospitalization)
  Sender: FDA-Public Use
  Company Number: 2007UW04134

PATIENT
  Age: 67 Year
  Sex: Female
  Weight: 59 kg

DRUGS (5)
  1. TOPROL-XL [Suspect]
     Indication: HYPERTENSION
     Route: 048
  2. BENICAR [Concomitant]
  3. PREMPRO [Concomitant]
  4. CLARITIN [Concomitant]
  5. DETROL LA [Concomitant]

REACTIONS (2)
  - FLUSHING [None]
  - HEADACHE [None]
